FAERS Safety Report 16886679 (Version 1)
Quarter: 2019Q4

REPORT INFORMATION
  Report Type: Spontaneous
  Country: US (occurrence: US)
  Receive Date: 20191004
  Receipt Date: 20191004
  Transmission Date: 20200122
  Serious: Yes (Death, Hospitalization, Other)
  Sender: FDA-Public Use
  Company Number: US-AMGEN-USASP2019159823

PATIENT
  Age: 60 Year
  Sex: Female

DRUGS (20)
  1. OXYCODONE [Concomitant]
     Active Substance: OXYCODONE
  2. VINORELBINE [Concomitant]
     Active Substance: VINORELBINE TARTRATE
     Indication: TUMOUR MARKER INCREASED
     Dosage: UNK
     Dates: start: 200802
  3. METOPROLOL SUCCINATE. [Concomitant]
     Active Substance: METOPROLOL SUCCINATE
  4. SENNA GLYCOSIDES [Concomitant]
     Active Substance: HERBALS\SENNOSIDES
  5. FUROSEMIDE. [Concomitant]
     Active Substance: FUROSEMIDE
  6. HYDRALAZINE [Concomitant]
     Active Substance: HYDRALAZINE HYDROCHLORIDE
  7. SIMVASTATIN. [Concomitant]
     Active Substance: SIMVASTATIN
  8. DOXORUBICIN [Concomitant]
     Active Substance: DOXORUBICIN
     Dosage: 50 MILLIGRAM/SQ. METER, EVERY 5 WEEKS
     Dates: start: 201211
  9. DOXORUBICIN [Concomitant]
     Active Substance: DOXORUBICIN
     Dosage: 40 MILLIEQUIVALENT PER SQUARE METRE
     Dates: start: 201411, end: 201503
  10. NIFEDIPINE. [Concomitant]
     Active Substance: NIFEDIPINE
  11. CAPECITABINE. [Concomitant]
     Active Substance: CAPECITABINE
     Indication: TUMOUR MARKER INCREASED
     Dosage: UNK
     Dates: start: 200802
  12. ANASTROZOLE. [Concomitant]
     Active Substance: ANASTROZOLE
  13. DOXIL [Concomitant]
     Active Substance: DOXORUBICIN HYDROCHLORIDE
  14. XGEVA [Suspect]
     Active Substance: DENOSUMAB
     Indication: PRODUCT USED FOR UNKNOWN INDICATION
     Dosage: UNK, QMO
     Route: 065
     Dates: start: 201204
  15. NAPROXEN. [Concomitant]
     Active Substance: NAPROXEN
     Indication: OSTEOARTHRITIS
     Dosage: UNK, BID
     Dates: end: 201502
  16. CLONIDINE. [Concomitant]
     Active Substance: CLONIDINE
  17. DOCUSATE [Concomitant]
     Active Substance: DOCUSATE
  18. LEVOTHYROXIN [Concomitant]
     Active Substance: LEVOTHYROXINE
  19. LISINOPRIL. [Concomitant]
     Active Substance: LISINOPRIL
  20. PYRIDOXINE [Concomitant]
     Active Substance: PYRIDOXINE

REACTIONS (8)
  - Nephrosclerosis [Unknown]
  - Uraemic encephalopathy [Unknown]
  - Hypertension [Unknown]
  - Breast cancer metastatic [Fatal]
  - Spinal cord compression [Unknown]
  - Spinal compression fracture [Unknown]
  - Metastases to peritoneum [Fatal]
  - Platelet count decreased [Unknown]

NARRATIVE: CASE EVENT DATE: 201401
